FAERS Safety Report 10253430 (Version 1)
Quarter: 2014Q2

REPORT INFORMATION
  Report Type: Spontaneous
  Country: DE (occurrence: DE)
  Receive Date: 20140623
  Receipt Date: 20140623
  Transmission Date: 20141212
  Serious: Yes (Hospitalization)
  Sender: FDA-Public Use
  Company Number: GXKR2014DE002265

PATIENT
  Age: 52 Year
  Sex: Female

DRUGS (2)
  1. ASS 1A PHARMA [Suspect]
     Dosage: 100 MG, QD
     Route: 048
     Dates: start: 20140515
  2. AGGRENOX [Concomitant]
     Indication: PLATELET AGGREGATION INHIBITION
     Route: 048
     Dates: end: 20140514

REACTIONS (1)
  - Cerebrovascular accident [Not Recovered/Not Resolved]
